FAERS Safety Report 4982676-3 (Version None)
Quarter: 2006Q2

REPORT INFORMATION
  Report Type: 
  Country: None (occurrence: None)
  Receive Date: 20060425
  Receipt Date: 20051209
  Transmission Date: 20061013
  Serious: Yes (Hospitalization, Other)
  Sender: FDA-Public Use
  Company Number: US-MERCK-0512USA01706

PATIENT
  Age: 73 Year
  Sex: Male
  Weight: 81 kg

DRUGS (7)
  1. VIOXX [Suspect]
     Indication: ARTHRITIS
     Route: 048
     Dates: start: 19990101, end: 20040301
  2. TYLENOL (CAPLET) [Concomitant]
     Route: 065
  3. NEURONTIN [Concomitant]
     Route: 065
  4. TRAMADOLOR [Concomitant]
     Route: 065
  5. ATENOLOL [Concomitant]
     Route: 065
  6. HYDRALAZINE [Concomitant]
     Route: 065
  7. HYDROCHLOROTHIAZIDE [Concomitant]
     Route: 065

REACTIONS (11)
  - BLOOD PRESSURE INCREASED [None]
  - CEREBROVASCULAR ACCIDENT [None]
  - DIZZINESS [None]
  - FALL [None]
  - GLAUCOMA [None]
  - HYPOTENSION [None]
  - IRRITABLE BOWEL SYNDROME [None]
  - NON-CARDIAC CHEST PAIN [None]
  - ORBITAL INFECTION [None]
  - RENAL DISORDER [None]
  - SINUS OPERATION [None]
